FAERS Safety Report 24201973 (Version 1)
Quarter: 2024Q3

REPORT INFORMATION
  Report Type: Spontaneous
  Country: CN (occurrence: CN)
  Receive Date: 20240812
  Receipt Date: 20240812
  Transmission Date: 20241017
  Serious: Yes (Hospitalization)
  Sender: IPSEN
  Company Number: CN-SERVIER-S24009759

PATIENT
  Age: 48 Year
  Sex: Female

DRUGS (3)
  1. IRINOTECAN HYDROCHLORIDE [Suspect]
     Active Substance: IRINOTECAN HYDROCHLORIDE
     Indication: Small intestine carcinoma
     Dosage: 68.8 MG, EVERY 2 WEEKS
     Route: 042
     Dates: start: 20240627, end: 20240627
  2. OXALIPLATIN [Suspect]
     Active Substance: OXALIPLATIN
     Indication: Malignant neoplasm of ampulla of Vater
     Dosage: 80 MG, EVERY 2 WEEKS
     Route: 042
     Dates: start: 20240627, end: 20240627
  3. GIMERACIL\OTERACIL\TEGAFUR [Suspect]
     Active Substance: GIMERACIL\OTERACIL POTASSIUM\TEGAFUR
     Indication: Malignant neoplasm of ampulla of Vater
     Dosage: 50 MG, BID
     Route: 048
     Dates: start: 20240627, end: 20240704

REACTIONS (1)
  - Myelosuppression [Recovering/Resolving]

NARRATIVE: CASE EVENT DATE: 20240704
